FAERS Safety Report 25360347 (Version 2)
Quarter: 2025Q3

REPORT INFORMATION
  Report Type: Report from Study
  Country: KR (occurrence: KR)
  Receive Date: 20250527
  Receipt Date: 20250811
  Transmission Date: 20251021
  Serious: Yes (Other)
  Sender: ALEXION PHARMACEUTICALS
  Company Number: KR-AstraZeneca-2024A170814

PATIENT
  Age: 67 Year
  Sex: Male
  Weight: 63 kg

DRUGS (2)
  1. OSIMERTINIB [Suspect]
     Active Substance: OSIMERTINIB
     Indication: Lung neoplasm malignant
     Dosage: 80 MILLIGRAM, QD
     Dates: start: 20240611
  2. OSIMERTINIB [Suspect]
     Active Substance: OSIMERTINIB
     Indication: Gene mutation

REACTIONS (19)
  - Hypophagia [Recovered/Resolved]
  - Decreased appetite [Not Recovered/Not Resolved]
  - Asthenia [Unknown]
  - Abdominal pain upper [Unknown]
  - Dizziness [Unknown]
  - Nausea [Recovering/Resolving]
  - Weight decreased [Recovered/Resolved]
  - Sleep disorder [Unknown]
  - Dyspnoea exertional [Recovering/Resolving]
  - Pain [Recovered/Resolved]
  - Rash macular [Unknown]
  - Haematochezia [Recovered/Resolved]
  - Respiratory tract congestion [Unknown]
  - Diarrhoea [Recovered/Resolved]
  - Urticaria [Unknown]
  - Pruritus [Unknown]
  - Pulmonary oedema [Recovered/Resolved]
  - Cough [Not Recovered/Not Resolved]
  - Eating disorder [Recovered/Resolved]

NARRATIVE: CASE EVENT DATE: 20250808
